FAERS Safety Report 5127881-0 (Version None)
Quarter: 2006Q4

REPORT INFORMATION
  Report Type: 
  Country: None (occurrence: None)
  Receive Date: 20061016
  Receipt Date: 20061006
  Transmission Date: 20070319
  Serious: Yes (Hospitalization)
  Sender: FDA-Public Use
  Company Number: FR-AMGEN-UK196175

PATIENT
  Age: 74 Year
  Sex: Female

DRUGS (1)
  1. MIMPARA [Suspect]
     Indication: DRUG USE FOR UNKNOWN INDICATION
     Route: 048
     Dates: start: 20060813, end: 20060914

REACTIONS (2)
  - CONFUSIONAL STATE [None]
  - TREMOR [None]
